FAERS Safety Report 5932242-8 (Version None)
Quarter: 2008Q4

REPORT INFORMATION
  Report Type: 
  Country: None (occurrence: None)
  Receive Date: 20081028
  Receipt Date: 20081023
  Transmission Date: 20090506
  Serious: Yes (Life-Threatening, Hospitalization, Disabling)
  Sender: FDA-Public Use
  Company Number: JP-BRISTOL-MYERS SQUIBB COMPANY-14361687

PATIENT
  Age: 66 Year
  Sex: Female

DRUGS (12)
  1. TAXOL [Suspect]
     Indication: NON-SMALL CELL LUNG CANCER
     Dosage: 2ND DAY OF WEEKLY -DAY8;STARTED ON 15AUG08;THERAPY DUR:5 DAYS
     Route: 041
     Dates: start: 20080815, end: 20080924
  2. PARAPLATIN [Suspect]
     Indication: NON-SMALL CELL LUNG CANCER
     Dosage: STARTED ON 15AUG08;THERAPY DUR:2 DAYS
     Route: 041
     Dates: start: 20080815, end: 20080917
  3. HEPARIN SODIUM [Suspect]
  4. PREDONINE [Concomitant]
     Route: 048
     Dates: start: 20080815
  5. MAGMITT [Concomitant]
     Route: 048
     Dates: start: 20080723
  6. LANSOPRAZOLE [Concomitant]
     Route: 048
     Dates: start: 20080723
  7. MUCOSOLVAN [Concomitant]
     Route: 048
     Dates: start: 20080723
  8. FLAVERIC [Concomitant]
     Route: 048
     Dates: start: 20080723
  9. RHYTHMY [Concomitant]
     Route: 048
     Dates: start: 20080723
  10. LORAZEPAM [Concomitant]
     Route: 048
     Dates: start: 20080723
  11. LENDORMIN [Concomitant]
     Route: 048
     Dates: start: 20080723
  12. PAXIL [Concomitant]
     Route: 048
     Dates: start: 20080723

REACTIONS (3)
  - CEREBRAL INFARCTION [None]
  - PYREXIA [None]
  - SCLERAL HAEMORRHAGE [None]
